FAERS Safety Report 5320020-2 (Version None)
Quarter: 2007Q2

REPORT INFORMATION
  Report Type: 
  Country: None (occurrence: None)
  Receive Date: 20070509
  Receipt Date: 20070430
  Transmission Date: 20071010
  Serious: No
  Sender: FDA-Public Use
  Company Number: US-ASTRAZENECA-2006UW14630

PATIENT
  Age: 570 Month
  Sex: Female
  Weight: 95.5 kg

DRUGS (2)
  1. SEROQUEL [Suspect]
     Indication: BIPOLAR DISORDER
     Dosage: 50 - 100 MG
     Route: 048
     Dates: start: 20020101, end: 20060701
  2. GEODON [Concomitant]
     Dates: start: 20070101

REACTIONS (1)
  - DIABETES MELLITUS [None]
